FAERS Safety Report 22389260 (Version 1)
Quarter: 2023Q2

REPORT INFORMATION
  Report Type: Spontaneous
  Country: IN (occurrence: IN)
  Receive Date: 20230531
  Receipt Date: 20230531
  Transmission Date: 20230722
  Serious: Yes (Hospitalization, Other)
  Sender: FDA-Public Use
  Company Number: IN-BAYER-2023A071066

PATIENT
  Age: 89 Year
  Sex: Male

DRUGS (1)
  1. NUBEQA [Suspect]
     Active Substance: DAROLUTAMIDE
     Indication: Prostate cancer

REACTIONS (7)
  - Platelet count decreased [None]
  - Prostate cancer [None]
  - Haemoglobin decreased [None]
  - Blood sodium decreased [None]
  - Blood potassium decreased [None]
  - Urinary tract infection [None]
  - Decreased appetite [None]
